FAERS Safety Report 5389877-3 (Version None)
Quarter: 2007Q3

REPORT INFORMATION
  Report Type: 
  Country: None (occurrence: None)
  Receive Date: 20070718
  Receipt Date: 20070710
  Transmission Date: 20080115
  Serious: Yes (Other)
  Sender: FDA-Public Use
  Company Number: PHBS2007JP08129

PATIENT
  Age: 64 Year
  Sex: Female

DRUGS (2)
  1. LAMISIL [Suspect]
     Indication: NAIL TINEA
     Dosage: 125 MG/DAY
     Route: 048
     Dates: start: 20061028, end: 20070322
  2. LAMISIL [Suspect]
     Dosage: 125 MG/DAY
     Route: 048
     Dates: start: 20070507

REACTIONS (5)
  - BLOOD UREA INCREASED [None]
  - HAEMATURIA [None]
  - PROTEIN URINE PRESENT [None]
  - RENAL IMPAIRMENT [None]
  - URINARY SEDIMENT ABNORMAL [None]
